FAERS Safety Report 21916195 (Version 14)
Quarter: 2023Q1

REPORT INFORMATION
  Report Type: Report from Study
  Country: CL (occurrence: None)
  Receive Date: 20230126
  Receipt Date: 20230321
  Transmission Date: 20230418
  Serious: Yes (Hospitalization)
  Sender: FDA-Public Use
  Company Number: CL-Eisai Medical Research-EC-2023-132614

PATIENT
  Age: 59 Year
  Sex: Male
  Weight: 74 kg

DRUGS (22)
  1. LENVATINIB [Suspect]
     Active Substance: LENVATINIB
     Indication: Adenocarcinoma pancreas
     Dosage: STARTING DOSE AT 20 MG, FLUCTUATED DOSAGE
     Route: 048
     Dates: start: 20220708, end: 20230117
  2. LENVATINIB [Suspect]
     Active Substance: LENVATINIB
     Route: 048
     Dates: start: 20230302
  3. PEMBROLIZUMAB [Suspect]
     Active Substance: PEMBROLIZUMAB
     Indication: Adenocarcinoma pancreas
     Route: 041
     Dates: start: 20220708, end: 20221229
  4. BELZUTIFAN [Suspect]
     Active Substance: BELZUTIFAN
     Indication: Adenocarcinoma pancreas
     Route: 048
     Dates: start: 20220708, end: 20230117
  5. BELZUTIFAN [Suspect]
     Active Substance: BELZUTIFAN
     Route: 048
     Dates: start: 20230302
  6. AMLODIPINE [Concomitant]
     Active Substance: AMLODIPINE BESYLATE
     Dates: start: 200201, end: 20230125
  7. LOSARTAN [Concomitant]
     Active Substance: LOSARTAN
     Dates: start: 200201, end: 20230125
  8. INSULIN NOS [Concomitant]
     Active Substance: INSULIN NOS
     Dates: start: 202106
  9. INSULIN NOS [Concomitant]
     Active Substance: INSULIN NOS
     Dates: start: 202106, end: 20230206
  10. METFORMIN [Concomitant]
     Active Substance: METFORMIN HYDROCHLORIDE
     Dates: start: 20210701
  11. METOCLOPRAMIDE [Concomitant]
     Active Substance: METOCLOPRAMIDE
     Dates: start: 202108
  12. ESOMEPRAZOLE [Concomitant]
     Active Substance: ESOMEPRAZOLE
     Dates: start: 202108
  13. DULOXETINE HYDROCHLORIDE [Concomitant]
     Active Substance: DULOXETINE HYDROCHLORIDE
     Dates: start: 202108
  14. TRAMADOL HYDROCHLORIDE [Concomitant]
     Active Substance: TRAMADOL HYDROCHLORIDE
     Dates: start: 202108
  15. ACETAMINOPHEN [Concomitant]
     Active Substance: ACETAMINOPHEN
     Dates: start: 202108, end: 20230118
  16. PREGABALIN [Concomitant]
     Active Substance: PREGABALIN
     Dates: start: 202108, end: 20230125
  17. HALOPERIDOL [Concomitant]
     Active Substance: HALOPERIDOL
     Dates: start: 20220906, end: 20230118
  18. SPIRONOLACTONE [Concomitant]
     Active Substance: SPIRONOLACTONE
     Dates: start: 20220922, end: 20230124
  19. ATORVASTATIN [Concomitant]
     Active Substance: ATORVASTATIN
     Dates: start: 20221102
  20. LEVOTHYROXINE SODIUM [Concomitant]
     Active Substance: LEVOTHYROXINE SODIUM
     Dates: start: 20221205
  21. MAGNATIL C [Concomitant]
     Dates: start: 20221205
  22. VIADIL [PARGEVERINE HYDROCHLORIDE] [Concomitant]
     Dates: start: 20221214, end: 20230118

REACTIONS (2)
  - Altered state of consciousness [Recovered/Resolved]
  - Hypoxia [Recovered/Resolved]

NARRATIVE: CASE EVENT DATE: 20230118
